FAERS Safety Report 5361357-0 (Version None)
Quarter: 2007Q2

REPORT INFORMATION
  Report Type: 
  Country: None (occurrence: None)
  Receive Date: 20070612
  Receipt Date: 20070530
  Transmission Date: 20071010
  Serious: Yes (Disabling)
  Sender: FDA-Public Use
  Company Number: S07-ESP-02493-01

PATIENT
  Age: 68 Year
  Sex: Male

DRUGS (2)
  1. CITALOPRAM HYDROBROMIDE [Suspect]
     Dosage: 20 MG QD PO
     Route: 048
     Dates: end: 20060321
  2. ARICEPT [Suspect]
     Dosage: 10 MG QD PO
     Route: 048
     Dates: end: 20060321

REACTIONS (1)
  - HEPATIC LESION [None]
